FAERS Safety Report 10588410 (Version 1)
Quarter: 2014Q4

REPORT INFORMATION
  Report Type: Spontaneous
  Country: IT (occurrence: IT)
  Receive Date: 20141117
  Receipt Date: 20141117
  Transmission Date: 20150529
  Serious: Yes (Hospitalization)
  Sender: FDA-Public Use
  Company Number: PHHY2014IT146825

PATIENT
  Sex: Female

DRUGS (4)
  1. ANTRA [Concomitant]
     Active Substance: OMEPRAZOLE
     Dosage: 20 MG, UNK
  2. FUROSEMIDE. [Suspect]
     Active Substance: FUROSEMIDE
     Dosage: 125 MG, QD
     Route: 048
     Dates: start: 20141030, end: 20141101
  3. CARDIRENE [Concomitant]
     Active Substance: ASPIRIN DL-LYSINE
     Dosage: 75 MG, UNK
  4. ENALAPRIL HCT [Concomitant]
     Active Substance: ENALAPRIL\HYDROCHLOROTHIAZIDE

REACTIONS (1)
  - Loss of consciousness [Recovering/Resolving]

NARRATIVE: CASE EVENT DATE: 20141101
